FAERS Safety Report 22333357 (Version 2)
Quarter: 2023Q2

REPORT INFORMATION
  Report Type: Report from Study
  Country: FR (occurrence: None)
  Receive Date: 20230517
  Receipt Date: 20230620
  Transmission Date: 20230722
  Serious: Yes (Other)
  Sender: FDA-Public Use
  Company Number: 2023A110881

PATIENT

DRUGS (3)
  1. ACALABRUTINIB [Suspect]
     Active Substance: ACALABRUTINIB
     Indication: Chronic lymphocytic leukaemia
     Route: 048
  2. VENETOCLAX [Concomitant]
     Active Substance: VENETOCLAX
  3. RITUXIMAB [Concomitant]
     Active Substance: RITUXIMAB

REACTIONS (1)
  - Atrial fibrillation [Unknown]
